FAERS Safety Report 6839481-2 (Version None)
Quarter: 2010Q3

REPORT INFORMATION
  Report Type: 
  Country: None (occurrence: None)
  Receive Date: 20100714
  Receipt Date: 20090807
  Transmission Date: 20110219
  Serious: No
  Sender: FDA-Public Use
  Company Number: A0801093A

PATIENT
  Sex: Female

DRUGS (2)
  1. FLOVENT [Suspect]
     Dosage: 1SPR TWICE PER DAY
     Route: 055
     Dates: start: 20090731
  2. ZITHROMAX [Concomitant]

REACTIONS (2)
  - FEELING ABNORMAL [None]
  - HYPOAESTHESIA FACIAL [None]
